FAERS Safety Report 9613831 (Version 1)
Quarter: 2013Q4

REPORT INFORMATION
  Report Type: Spontaneous
  Country: US (occurrence: US)
  Receive Date: 20131010
  Receipt Date: 20131010
  Transmission Date: 20140711
  Serious: No
  Sender: FDA-Public Use
  Company Number: US-ALLERGAN-1218414US

PATIENT
  Age: 32 Year
  Sex: Female

DRUGS (1)
  1. VANIQA [Suspect]
     Indication: HAIR GROWTH ABNORMAL
     Dosage: APPLIED ON THE CHEEKS AND ABOVE THE UPPER LIP
     Route: 061
     Dates: start: 20121015, end: 20121220

REACTIONS (1)
  - Acne [Recovered/Resolved]
